FAERS Safety Report 24072292 (Version 1)
Quarter: 2024Q3

REPORT INFORMATION
  Report Type: Spontaneous
  Country: DE (occurrence: DE)
  Receive Date: 20240710
  Receipt Date: 20240710
  Transmission Date: 20241017
  Serious: Yes (Other)
  Sender: GRIFOLS
  Company Number: None

PATIENT
  Age: 27 Year
  Sex: Male
  Weight: 100 kg

DRUGS (5)
  1. GAMUNEX [Suspect]
     Active Substance: HUMAN IMMUNOGLOBULIN G
     Indication: Immunodeficiency
     Dosage: 10 GRAM, UNKNOWN
     Route: 042
     Dates: start: 20210709, end: 20210710
  2. GAMUNEX [Suspect]
     Active Substance: HUMAN IMMUNOGLOBULIN G
     Dosage: GAMUNEX 10% 20G 200ML 1 FL
     Dates: start: 20210723, end: 20210723
  3. GAMUNEX [Suspect]
     Active Substance: HUMAN IMMUNOGLOBULIN G
     Dosage: GAMUNEX 10% 20G 200ML 1 FL.
     Dates: start: 20210723, end: 20210723
  4. GAMUNEX [Suspect]
     Active Substance: HUMAN IMMUNOGLOBULIN G
     Dosage: GAMUNEX 10% 20G 200ML 1 FL.
     Dates: start: 20210723, end: 20210723
  5. GAMUNEX [Suspect]
     Active Substance: HUMAN IMMUNOGLOBULIN G
     Dosage: GAMUNEX 10% 20G 200ML 1 FL.
     Dates: start: 20210723, end: 20210723

REACTIONS (2)
  - Hepatitis B core antibody positive [Unknown]
  - Hepatitis [Unknown]

NARRATIVE: CASE EVENT DATE: 20210723
